FAERS Safety Report 18814562 (Version 1)
Quarter: 2021Q1

REPORT INFORMATION
  Report Type: Spontaneous
  Country: US (occurrence: US)
  Receive Date: 20210129
  Receipt Date: 20210129
  Transmission Date: 20210419
  Serious: No
  Sender: FDA-Public Use
  Company Number: None

PATIENT
  Age: 56 Year
  Sex: Female
  Weight: 83.01 kg

DRUGS (15)
  1. METFORMIN HCL [Concomitant]
     Active Substance: METFORMIN HYDROCHLORIDE
  2. PRAMIPEXOLE DIHYDROCHLORIDE. [Concomitant]
     Active Substance: PRAMIPEXOLE DIHYDROCHLORIDE
  3. FIORICET [Concomitant]
     Active Substance: ACETAMINOPHEN\BUTALBITAL\CAFFEINE
  4. ATIVAN [Concomitant]
     Active Substance: LORAZEPAM
  5. LISINOPRIL AND HYDROCHLOROTHIAZIDE [Concomitant]
     Active Substance: HYDROCHLOROTHIAZIDE\LISINOPRIL
  6. SEROQUEL XR [Concomitant]
     Active Substance: QUETIAPINE FUMARATE
  7. PROMETHAZINE HCL [Concomitant]
     Active Substance: PROMETHAZINE HYDROCHLORIDE
  8. ZYRTEC [Concomitant]
     Active Substance: CETIRIZINE HYDROCHLORIDE
  9. KISQALI [Suspect]
     Active Substance: RIBOCICLIB
     Indication: BREAST CANCER
     Route: 048
     Dates: start: 20210121, end: 20210129
  10. LYRICA [Concomitant]
     Active Substance: PREGABALIN
  11. CLINDAMYCIN HCL [Concomitant]
     Active Substance: CLINDAMYCIN HYDROCHLORIDE
  12. HYDROCODONE?ACETAMINOPHEN [Concomitant]
     Active Substance: ACETAMINOPHEN\HYDROCODONE
  13. FULVESTRANT. [Concomitant]
     Active Substance: FULVESTRANT
  14. BENADRYL ALLERGY [Concomitant]
     Active Substance: DIPHENHYDRAMINE HYDROCHLORIDE
  15. ONDANSETRON HC [Concomitant]

REACTIONS (2)
  - Oedema [None]
  - Migraine [None]

NARRATIVE: CASE EVENT DATE: 20210129
